FAERS Safety Report 9743269 (Version 1)
Quarter: 2013Q4

REPORT INFORMATION
  Report Type: Spontaneous
  Country: US (occurrence: US)
  Receive Date: 20131210
  Receipt Date: 20131210
  Transmission Date: 20140711
  Serious: Yes (Disabling)
  Sender: FDA-Public Use
  Company Number: US-GILEAD-2009-0025516

PATIENT
  Age: 80 Year
  Sex: Female
  Weight: 49.49 kg

DRUGS (14)
  1. LETAIRIS [Suspect]
     Indication: PULMONARY ARTERIAL HYPERTENSION
     Route: 048
     Dates: start: 20090914
  2. SINGULAIR [Concomitant]
  3. ALDACTONE [Concomitant]
  4. LASIX [Concomitant]
  5. BENTYL [Concomitant]
  6. ZYRTEC [Concomitant]
  7. COLCHICINE [Concomitant]
  8. SYMBICORT AER [Concomitant]
  9. HYDROXY/HCL [Concomitant]
  10. ALLOPURINOL [Concomitant]
  11. ERYTHROMYCIN [Concomitant]
  12. XOPENEX [Concomitant]
  13. FERROUS SULFATE [Concomitant]
  14. ALIGN [Concomitant]

REACTIONS (9)
  - Hypersensitivity [Not Recovered/Not Resolved]
  - Pain [Unknown]
  - Gout [Unknown]
  - Muscle spasms [Unknown]
  - Nausea [Unknown]
  - Vomiting [Unknown]
  - Sinus congestion [Unknown]
  - Abdominal pain [Unknown]
  - Dyspnoea [Unknown]
